FAERS Safety Report 6313468-0 (Version None)
Quarter: 2009Q3

REPORT INFORMATION
  Report Type: 
  Country: None (occurrence: None)
  Receive Date: 20090814
  Receipt Date: 20090814
  Transmission Date: 20100115
  Serious: No
  Sender: FDA-Public Use
  Company Number: None

PATIENT
  Age: 7 Year
  Sex: Male

DRUGS (1)
  1. EPINEPHRINE [Suspect]

REACTIONS (3)
  - BLOOD PRESSURE DECREASED [None]
  - INCORRECT DRUG ADMINISTRATION RATE [None]
  - WRONG DRUG ADMINISTERED [None]
